FAERS Safety Report 22013776 (Version 1)
Quarter: 2023Q1

REPORT INFORMATION
  Report Type: Spontaneous
  Country: US (occurrence: US)
  Receive Date: 20230221
  Receipt Date: 20230221
  Transmission Date: 20230417
  Serious: Yes (Other)
  Sender: FDA-Public Use
  Company Number: US-AMGEN-USASP2023028247

PATIENT
  Sex: Male

DRUGS (1)
  1. OTEZLA [Suspect]
     Active Substance: APREMILAST
     Indication: Product used for unknown indication
     Dosage: 30 MILLIGRAM
     Route: 048

REACTIONS (4)
  - Haemorrhage [Unknown]
  - Musculoskeletal stiffness [Unknown]
  - Inappropriate schedule of product administration [Unknown]
  - Rash [Unknown]
